FAERS Safety Report 12761245 (Version 1)
Quarter: 2016Q3

REPORT INFORMATION
  Report Type: Spontaneous
  Country: US (occurrence: US)
  Receive Date: 20160920
  Receipt Date: 20160920
  Transmission Date: 20161109
  Serious: No
  Sender: FDA-Public Use
  Company Number: US-TEVA-601296USA

PATIENT
  Sex: Male
  Weight: 108.05 kg

DRUGS (1)
  1. CARVEDILOL. [Suspect]
     Active Substance: CARVEDILOL
     Indication: PRODUCT USED FOR UNKNOWN INDICATION
     Route: 065
     Dates: start: 20150701

REACTIONS (6)
  - Depression [Unknown]
  - Sleep disorder [Unknown]
  - Agitation [Unknown]
  - Memory impairment [Unknown]
  - Nervousness [Unknown]
  - Crying [Unknown]
